FAERS Safety Report 11030867 (Version 2)
Quarter: 2015Q3

REPORT INFORMATION
  Report Type: Report from Study
  Country: US (occurrence: US)
  Receive Date: 20150415
  Receipt Date: 20150824
  Transmission Date: 20151125
  Serious: Yes (Other)
  Sender: FDA-Public Use
  Company Number: US-BEH-2015050225

PATIENT
  Age: 52 Year
  Sex: Female
  Weight: 89 kg

DRUGS (1)
  1. HIZENTRA [Suspect]
     Active Substance: HUMAN IMMUNOGLOBULIN G
     Indication: IMMUNODEFICIENCY COMMON VARIABLE
     Dosage: ??-???-2008
     Route: 058

REACTIONS (5)
  - Vocal cord paralysis [Not Recovered/Not Resolved]
  - Ear infection [Unknown]
  - Aphasia [Not Recovered/Not Resolved]
  - Thyroid cancer [Recovered/Resolved]
  - Thyroidectomy [Unknown]

NARRATIVE: CASE EVENT DATE: 201305
